FAERS Safety Report 6824003-2 (Version None)
Quarter: 2010Q3

REPORT INFORMATION
  Report Type: 
  Country: None (occurrence: None)
  Receive Date: 20100708
  Receipt Date: 20061002
  Transmission Date: 20110219
  Serious: No
  Sender: FDA-Public Use
  Company Number: US-PFIZER INC-2006119393

PATIENT

DRUGS (1)
  1. CHANTIX [Suspect]
     Dates: start: 20060911, end: 20060929

REACTIONS (1)
  - SKIN ODOUR ABNORMAL [None]
